FAERS Safety Report 18415670 (Version 1)
Quarter: 2020Q4

REPORT INFORMATION
  Report Type: Spontaneous
  Country: AU (occurrence: AU)
  Receive Date: 20201022
  Receipt Date: 20201022
  Transmission Date: 20210114
  Serious: Yes (Other)
  Sender: FDA-Public Use
  Company Number: AU-ALVOGEN-2020-ALVOGEN-114976

PATIENT
  Sex: Male

DRUGS (8)
  1. METRONIDAZOLE. [Suspect]
     Active Substance: METRONIDAZOLE
     Indication: WOUND INFECTION STAPHYLOCOCCAL
     Dosage: 500 MG, 2X/DAY
  2. MEROPENEM. [Suspect]
     Active Substance: MEROPENEM
     Indication: STAPHYLOCOCCAL INFECTION
  3. TEICOPLANIN [Suspect]
     Active Substance: TEICOPLANIN
     Indication: WOUND INFECTION STAPHYLOCOCCAL
     Dosage: 400 MG, (EVERY THIRD DAY)
     Route: 042
  4. FLUCLOXACILLIN [Suspect]
     Active Substance: FLUCLOXACILLIN
     Indication: ANTIBIOTIC THERAPY
  5. CEFALEXIN [Suspect]
     Active Substance: CEPHALEXIN
     Indication: ANTIBIOTIC THERAPY
  6. CLINDAMYCIN. [Suspect]
     Active Substance: CLINDAMYCIN
     Indication: PERIPHERAL ISCHAEMIA
  7. VANCOMYCIN [Suspect]
     Active Substance: VANCOMYCIN
     Indication: INFECTION
  8. GENTAMICIN SULFATE. [Suspect]
     Active Substance: GENTAMICIN SULFATE
     Indication: ANTIBIOTIC THERAPY
     Dosage: 160 MG, DAILY
     Route: 042

REACTIONS (2)
  - Drug resistance [Unknown]
  - Treatment failure [Unknown]
